FAERS Safety Report 5308154-X (Version None)
Quarter: 2007Q2

REPORT INFORMATION
  Report Type: 
  Country: None (occurrence: None)
  Receive Date: 20070426
  Receipt Date: 20070418
  Transmission Date: 20071010
  Serious: Yes (Other)
  Sender: FDA-Public Use
  Company Number: PHEH2007US05690

PATIENT
  Sex: Male

DRUGS (3)
  1. ZOMETA [Suspect]
     Indication: OSTEOPOROSIS
     Dates: start: 20070413, end: 20070413
  2. ANTIHYPERTENSIVES [Concomitant]
  3. THYROID THERAPY [Concomitant]

REACTIONS (5)
  - HYPERGLYCAEMIA [None]
  - MYALGIA [None]
  - NAUSEA [None]
  - PYREXIA [None]
  - VOMITING [None]
